FAERS Safety Report 5389898-0 (Version None)
Quarter: 2007Q3

REPORT INFORMATION
  Report Type: 
  Country: None (occurrence: None)
  Receive Date: 20070716
  Receipt Date: 20070716
  Transmission Date: 20080115
  Serious: No
  Sender: FDA-Public Use
  Company Number: None

PATIENT

DRUGS (2)
  1. TWINJECT AUTO-INJECTOR  DIST. BY VERUS PHARMACEUTICALS, INC [Suspect]
     Indication: HYPERSENSITIVITY
  2. EPINEPHRINE [Suspect]

REACTIONS (1)
  - PHARMACEUTICAL PRODUCT COMPLAINT [None]
